FAERS Safety Report 4296560-4 (Version None)
Quarter: 2004Q1

REPORT INFORMATION
  Report Type: 
  Country: None (occurrence: None)
  Receive Date: 20040211
  Receipt Date: 20031013
  Transmission Date: 20041129
  Serious: Yes (Other)
  Sender: FDA-Public Use
  Company Number: SUS1-2003-00383

PATIENT
  Age: 11 Year
  Sex: Male

DRUGS (3)
  1. ADDERALL XR 20 [Suspect]
     Dosage: 20 MG, 1X/DAY:QD
  2. ADDERALL 5 [Suspect]
     Dosage: 5 MG
  3. ALBUTEROL [Concomitant]

REACTIONS (2)
  - PSYCHOTIC DISORDER [None]
  - TIC [None]
